FAERS Safety Report 24701111 (Version 2)
Quarter: 2024Q4

REPORT INFORMATION
  Report Type: Spontaneous
  Country: DE (occurrence: DE)
  Receive Date: 20241205
  Receipt Date: 20241219
  Transmission Date: 20250115
  Serious: No
  Sender: BOEHRINGER INGELHEIM
  Company Number: DE-Komodo Health-a23aa000004bpinAAA

PATIENT
  Age: 56 Year
  Sex: Male
  Weight: 90 kg

DRUGS (1)
  1. JARDIANCE [Suspect]
     Active Substance: EMPAGLIFLOZIN
     Indication: Product used for unknown indication
     Route: 048
     Dates: end: 202411

REACTIONS (1)
  - Genital candidiasis [Not Recovered/Not Resolved]
